FAERS Safety Report 25582202 (Version 1)
Quarter: 2025Q3

REPORT INFORMATION
  Report Type: Spontaneous
  Country: EU (occurrence: EU)
  Receive Date: 20250719
  Receipt Date: 20250719
  Transmission Date: 20251021
  Serious: Yes (Life-Threatening, Other)
  Sender: DR REDDYS
  Company Number: None

PATIENT
  Age: 50 Year
  Sex: Male

DRUGS (8)
  1. BORTEZOMIB [Suspect]
     Active Substance: BORTEZOMIB
     Indication: T-cell lymphoma
     Dosage: ON DAYS 1, 4, 8, AND 11 RECEIVED 3 CYCLES (21 DAYS PER CYCLES)
     Route: 058
     Dates: end: 2022
  2. BORTEZOMIB [Suspect]
     Active Substance: BORTEZOMIB
     Indication: Non-Hodgkin^s lymphoma
  3. NELARABINE [Suspect]
     Active Substance: NELARABINE
     Indication: Non-Hodgkin^s lymphoma
     Dosage: ALTERNATE-DAY SCHEDULE (1.5 G/M2 PER DAY ON DAYS 1, 3, AND 5) FOR 2 CYCLES
     Route: 042
     Dates: start: 202112
  4. NELARABINE [Suspect]
     Active Substance: NELARABINE
     Indication: T-cell lymphoma
  5. DEXAMETHASONE [Suspect]
     Active Substance: DEXAMETHASONE
     Indication: T-cell lymphoma
     Dates: start: 2019
  6. DEXAMETHASONE [Suspect]
     Active Substance: DEXAMETHASONE
     Indication: Non-Hodgkin^s lymphoma
     Dosage: ON DAYS 1-2, 4-5, 8-9, 11 AND 12, FOR A TOTAL DOSE OF 160 MG PER CYCLE (3 CYCLES-21 DAYS FOR CYCLE)
     Route: 042
     Dates: start: 202204, end: 2022
  7. TOLODODEKIN ALFA [Suspect]
     Active Substance: TOLODODEKIN ALFA
     Indication: T-cell lymphoma
     Dosage: DAYS 1, 8, AND 15 FOR 3 CYCLES (21 DAYS PER CYCLE)
     Route: 042
     Dates: end: 2022
  8. TOLODODEKIN ALFA [Suspect]
     Active Substance: TOLODODEKIN ALFA
     Indication: Non-Hodgkin^s lymphoma

REACTIONS (7)
  - Thrombocytopenia [Unknown]
  - Febrile neutropenia [Recovering/Resolving]
  - Anaemia [Unknown]
  - Rhinitis [Recovering/Resolving]
  - Cough [Recovering/Resolving]
  - Infusion related reaction [Recovering/Resolving]
  - Bronchopulmonary aspergillosis [Recovering/Resolving]

NARRATIVE: CASE EVENT DATE: 20220101
